FAERS Safety Report 6074369-9 (Version None)
Quarter: 2009Q1

REPORT INFORMATION
  Report Type: 
  Country: None (occurrence: None)
  Receive Date: 20090211
  Receipt Date: 20090203
  Transmission Date: 20090719
  Serious: Yes (Hospitalization)
  Sender: FDA-Public Use
  Company Number: FR-PFIZER INC-2009165462

PATIENT

DRUGS (8)
  1. TAHOR [Suspect]
     Route: 048
     Dates: start: 20080201, end: 20080401
  2. SIMVASTATIN [Suspect]
     Route: 048
     Dates: start: 20060504, end: 20080201
  3. ALDACTONE [Concomitant]
     Dosage: 25 MG, 1X/DAY
  4. COVERSYL [Concomitant]
  5. CARDENSIEL [Concomitant]
  6. LASILIX [Concomitant]
     Dosage: 40 MG, 1X/DAY
  7. PLAVIX [Concomitant]
     Dosage: 75 MG, 1X/DAY
  8. GLUCOPHAGE [Concomitant]

REACTIONS (3)
  - DERMATOMYOSITIS [None]
  - MUSCLE ENZYME INCREASED [None]
  - MYALGIA [None]
